FAERS Safety Report 16144816 (Version 2)
Quarter: 2019Q2

REPORT INFORMATION
  Report Type: Spontaneous
  Country: PL (occurrence: PL)
  Receive Date: 20190402
  Receipt Date: 20190406
  Transmission Date: 20190711
  Serious: Yes (Other)
  Sender: FDA-Public Use
  Company Number: PL-ROCHE-2293070

PATIENT
  Age: 53 Year
  Sex: Male

DRUGS (7)
  1. SOVALDI [Suspect]
     Active Substance: SOFOSBUVIR
     Indication: CHRONIC HEPATITIS C
     Dosage: UNK
     Route: 065
     Dates: start: 2017
  2. COPEGUS [Concomitant]
     Active Substance: RIBAVIRIN
     Route: 065
     Dates: start: 20080807
  3. RIBAVIRIN. [Suspect]
     Active Substance: RIBAVIRIN
     Indication: CHRONIC HEPATITIS C
     Dosage: UNK
     Route: 065
     Dates: start: 2017
  4. ALFAFERONE [Concomitant]
     Active Substance: INTERFERON ALFA-N3
     Route: 065
     Dates: start: 20100914
  5. PEGINTRON [Concomitant]
     Active Substance: PEGINTERFERON ALFA-2B
     Route: 065
     Dates: start: 20051205
  6. REBETOL [Concomitant]
     Active Substance: RIBAVIRIN
     Route: 065
     Dates: start: 20051205
  7. REBETOL [Concomitant]
     Active Substance: RIBAVIRIN
     Route: 065
     Dates: start: 20100914

REACTIONS (5)
  - Disease progression [Unknown]
  - Hepatic cirrhosis [Unknown]
  - Platelet count decreased [Unknown]
  - Drug ineffective [Unknown]
  - Hepatitis C [Unknown]

NARRATIVE: CASE EVENT DATE: 2017
